FAERS Safety Report 15863470 (Version 1)
Quarter: 2018Q4

REPORT INFORMATION
  Report Type: Spontaneous
  Country: US (occurrence: US)
  Receive Date: 20181228
  Receipt Date: 20181228
  Transmission Date: 20190205
  Serious: Yes (Hospitalization)
  Sender: FDA-Public Use
  Company Number: None

PATIENT
  Age: 70 Year
  Sex: Male
  Weight: 82 kg

DRUGS (1)
  1. REGORAFENIB. [Suspect]
     Active Substance: REGORAFENIB
     Indication: PROSTATE CANCER
     Route: 048
     Dates: start: 20180711, end: 20180921

REACTIONS (2)
  - Hypotension [None]
  - Seizure [None]

NARRATIVE: CASE EVENT DATE: 20180903
